FAERS Safety Report 18513333 (Version 2)
Quarter: 2020Q4

REPORT INFORMATION
  Report Type: Report from Study
  Country: CA (occurrence: CA)
  Receive Date: 20201117
  Receipt Date: 20201202
  Transmission Date: 20210114
  Serious: Yes (Hospitalization)
  Sender: FDA-Public Use
  Company Number: CA-MORPHOSYS US-2020-MOR000860-CA

PATIENT

DRUGS (2)
  1. BENDAMUSTINE [Suspect]
     Active Substance: BENDAMUSTINE
     Indication: DIFFUSE LARGE B-CELL LYMPHOMA REFRACTORY
     Dosage: 180 MICROGRAM/SQ. METER MONTHLY
     Dates: start: 20190529
  2. TAFASITAMAB [Suspect]
     Active Substance: TAFASITAMAB
     Indication: DIFFUSE LARGE B-CELL LYMPHOMA REFRACTORY
     Dosage: 12 MILLIGRAM/KILOGRAM
     Route: 042
     Dates: start: 20190528, end: 20201105

REACTIONS (1)
  - Bacterial sepsis [Unknown]

NARRATIVE: CASE EVENT DATE: 20201102
